FAERS Safety Report 4874279-6 (Version None)
Quarter: 2006Q1

REPORT INFORMATION
  Report Type: 
  Country: None (occurrence: None)
  Receive Date: 20060104
  Receipt Date: 20060104
  Transmission Date: 20060701
  Serious: Yes (Life-Threatening, Hospitalization)
  Sender: FDA-Public Use
  Company Number: None

PATIENT
  Age: 24 Year
  Sex: Male
  Weight: 116 kg

DRUGS (1)
  1. TYLENOL (CAPLET) [Suspect]
     Dosage: 25 TABLETS X1
     Dates: start: 20050907, end: 20050907

REACTIONS (2)
  - LETHARGY [None]
  - SOMNOLENCE [None]
